FAERS Safety Report 6481188-8 (Version None)
Quarter: 2009Q4

REPORT INFORMATION
  Report Type: 
  Country: None (occurrence: None)
  Receive Date: 20091208
  Receipt Date: 20090311
  Transmission Date: 20100525
  Serious: No
  Sender: FDA-Public Use
  Company Number: US-AMGEN-KDL338062

PATIENT
  Sex: Female
  Weight: 92.2 kg

DRUGS (9)
  1. ENBREL [Suspect]
     Indication: RHEUMATOID ARTHRITIS
     Route: 058
     Dates: start: 20090218, end: 20090311
  2. METHOTREXATE [Concomitant]
     Route: 048
     Dates: start: 20080929
  3. MELOXICAM [Concomitant]
     Dates: start: 20080603
  4. VERAPAMIL [Concomitant]
     Dates: start: 20081021
  5. ENALAPRIL [Concomitant]
     Dates: start: 20081021
  6. ASPIRIN [Concomitant]
     Dates: start: 20060812
  7. VYTORIN [Concomitant]
     Dates: start: 20070907
  8. FOLIC ACID [Concomitant]
  9. CALTRATE [Concomitant]

REACTIONS (3)
  - ABSCESS RUPTURE [None]
  - CYST [None]
  - NODULE [None]
